FAERS Safety Report 25437574 (Version 2)
Quarter: 2025Q2

REPORT INFORMATION
  Report Type: Spontaneous
  Country: BR (occurrence: BR)
  Receive Date: 20250616
  Receipt Date: 20250620
  Transmission Date: 20250716
  Serious: No
  Sender: NOVO NORDISK
  Company Number: BR-NOVOPROD-1415502

PATIENT
  Sex: Female

DRUGS (1)
  1. NOVOLIN N [Suspect]
     Active Substance: INSULIN HUMAN
     Indication: Diabetes mellitus
     Dates: start: 2003

REACTIONS (5)
  - Vein disorder [Unknown]
  - Anger [Unknown]
  - Nervousness [Unknown]
  - Insomnia [Unknown]
  - Product quality issue [Unknown]
